FAERS Safety Report 8247641-1 (Version None)
Quarter: 2012Q1

REPORT INFORMATION
  Report Type: 
  Country: None (occurrence: None)
  Receive Date: 20120330
  Receipt Date: 20120309
  Transmission Date: 20120608
  Serious: No
  Sender: FDA-Public Use
  Company Number: US-BAYER-2012-024011

PATIENT
  Sex: Female

DRUGS (1)
  1. MIRENA [Suspect]
     Dosage: 20 MCG/24HR, UNK
     Route: 015
     Dates: start: 20111111, end: 20120214

REACTIONS (11)
  - DEVICE DIFFICULT TO USE [None]
  - MALAISE [None]
  - FOOD CRAVING [None]
  - HYPOAESTHESIA [None]
  - NAUSEA [None]
  - VOMITING [None]
  - HEART RATE INCREASED [None]
  - HEADACHE [None]
  - WEIGHT INCREASED [None]
  - PARAESTHESIA [None]
  - BLOOD PRESSURE INCREASED [None]
